FAERS Safety Report 6254208-3 (Version None)
Quarter: 2009Q3

REPORT INFORMATION
  Report Type: 
  Country: None (occurrence: None)
  Receive Date: 20090701
  Receipt Date: 20090701
  Transmission Date: 20100115
  Serious: No
  Sender: FDA-Public Use
  Company Number: None

PATIENT
  Sex: Female
  Weight: 102.0593 kg

DRUGS (2)
  1. SERTRALINE [Suspect]
     Indication: HOT FLUSH
     Dosage: 100 MG DAILY PO
     Route: 048
     Dates: start: 20090616, end: 20090630
  2. SERTRALINE [Suspect]
     Indication: MENOPAUSE
     Dosage: 100 MG DAILY PO
     Route: 048
     Dates: start: 20090616, end: 20090630

REACTIONS (3)
  - DRUG INEFFECTIVE [None]
  - OFF LABEL USE [None]
  - PRODUCT QUALITY ISSUE [None]
